FAERS Safety Report 17412737 (Version 1)
Quarter: 2020Q1

REPORT INFORMATION
  Report Type: Report from Study
  Country: US (occurrence: US)
  Receive Date: 20200213
  Receipt Date: 20200213
  Transmission Date: 20200409
  Serious: No
  Sender: FDA-Public Use
  Company Number: NVSC2020US037115

PATIENT
  Age: 41 Year
  Sex: Female

DRUGS (1)
  1. ILARIS [Suspect]
     Active Substance: CANAKINUMAB
     Indication: PRODUCT USED FOR UNKNOWN INDICATION
     Dosage: 300 MG/KG, QMO
     Route: 058

REACTIONS (4)
  - Headache [Unknown]
  - Blood pressure increased [Unknown]
  - Bursitis [Unknown]
  - Drug ineffective [Unknown]
